FAERS Safety Report 26204209 (Version 1)
Quarter: 2025Q4

REPORT INFORMATION
  Report Type: Report from Study
  Country: CA (occurrence: CA)
  Receive Date: 20251226
  Receipt Date: 20251226
  Transmission Date: 20260119
  Serious: Yes (Hospitalization, Other)
  Sender: HLS THERAPEUTICS
  Company Number: CA-HLS-202503324

PATIENT
  Age: 48 Year
  Sex: Female

DRUGS (27)
  1. CLOZARIL [Suspect]
     Active Substance: CLOZAPINE
     Indication: Product used for unknown indication
     Dosage: TAKE 2 TAB OF100 MG AT NIGHT
     Route: 065
  2. CLOZARIL [Suspect]
     Active Substance: CLOZAPINE
     Indication: Product used for unknown indication
     Dosage: TAKE 300 MG BY MOUTH NIGHT
     Route: 048
     Dates: start: 20140227
  3. VITAMIN D3 [Concomitant]
     Active Substance: CHOLECALCIFEROL
     Dosage: TAKE 2,500 UNITS BY MOUTH DAILY. ORAL DROPS
     Route: 065
  4. VITAMIN B12 [Concomitant]
     Active Substance: CYANOCOBALAMIN
     Dosage: INJECT 1,000 MCG INTO THE MUSCLE EVERY 30 (THIRTY} DAYS. MIDDLE OF THE MONTH
     Route: 065
  5. JANUMET XR [Concomitant]
     Active Substance: METFORMIN HYDROCHLORIDE\SITAGLIPTIN PHOSPHATE
     Dosage: TAKE 2 TABLETS BY MOUTH DAILY,
     Route: 048
  6. SENOKOT [Concomitant]
     Active Substance: SENNOSIDES
     Indication: Constipation
     Dosage: TAKE 17,2 MG BY MOUTH NIGHTLY AS NEEDED
     Route: 048
  7. PROBIOTICS NOS [Concomitant]
     Active Substance: PROBIOTICS NOS
     Dosage: TAKE 1 CAPSULE BY MOUTH DAILY.
     Route: 048
  8. PANTOPRAZOLE MAGNESIUM [Concomitant]
     Active Substance: PANTOPRAZOLE MAGNESIUM
     Dosage: TAKE 40 MG BY MOUTH AFTER DINNER.
     Route: 065
  9. ONDANSETRON [Concomitant]
     Active Substance: ONDANSETRON
     Dosage: TAKE 2. TABLETS (16 MG TOTAL} BY MOUTH ONE-HOUR BEFORE CHEMOTHERAPY ON DAY 1.?MAY SUBSTITUTE WITH OD
     Route: 065
  10. OLANZAPINE [Concomitant]
     Active Substance: OLANZAPINE
     Indication: Prophylaxis of nausea and vomiting
     Dosage: TAKE1 TABLET {2.5 MG TOTAL) BY MOUTH 2 (TWO) TIMES A DAY AS NEEDED
     Route: 048
  11. ATIVAN [Concomitant]
     Active Substance: LORAZEPAM
     Dosage: PLACE 1 MG UNDER THE TONGUE 2 (TWO) TIMES A DAY AS NEEDED
     Route: 065
  12. DIAMICRON [Concomitant]
     Dosage: TAKE 1 TABLET (60 MG TOTAL) BY MOUTH DAILY WITH BREAKFAST
     Route: 065
  13. FERROUS FUMARATE [Concomitant]
     Active Substance: FERROUS FUMARATE
     Dosage: TAKE 300 MG BY MOUTH DAILY.
     Route: 065
     Dates: end: 20240302
  14. CYMBALTA [Concomitant]
     Active Substance: DULOXETINE HYDROCHLORIDE
     Dosage: TAKE 30 MG BY MOUTH DAILY, TOTAL DOSE 90 MG
     Route: 065
  15. CYMBALTA [Concomitant]
     Active Substance: DULOXETINE HYDROCHLORIDE
     Dosage: TAKE 60 MG BY MOUTH DAILY. TOTAL DOSE 90 MG
     Route: 065
  16. RIVOTRIL [Concomitant]
     Active Substance: CLONAZEPAM
     Dosage: 1.5 MG BY MOUTH NIGHTLY
     Route: 065
  17. RIVOTRIL [Concomitant]
     Active Substance: CLONAZEPAM
     Dosage: TAKE 0.25 MG BY MOUTH EVERY MORNING
     Route: 065
  18. WELLBUTRIN XL [Concomitant]
     Active Substance: BUPROPION HYDROCHLORIDE
     Dosage: 300 MG 24 HR TABLET
     Route: 065
  19. abllify [Concomitant]
     Dosage: 10 MG BY MOUTH DAILY
     Route: 065
  20. Clindamyin [Concomitant]
     Dosage: 300 MG PO TID X 10 DAYS DISPENSED 31 OCT 2025
     Route: 065
  21. TYLENOL [Concomitant]
     Active Substance: ACETAMINOPHEN
     Dosage: TAKE 1 TABLET BY MOUTH DAILY
     Route: 065
  22. LIPITOR [Concomitant]
     Active Substance: ATORVASTATIN CALCIUM
     Dosage: TAKE 1 TABLET (20 RNG TOTAL) BY MOUTH NIGHTLY. INCREASE FROM 10 MG PO OD
     Route: 065
  23. TRESIBA [Concomitant]
     Active Substance: INSULIN DEGLUDEC
     Dosage: INSULIN DEGLUDEC 200 UNIT/ML INSULIN PEN
     Route: 065
     Dates: start: 20251206
  24. Cipho [Concomitant]
     Dosage: TAKE 1 TABLET (500 MG TOTAL) BY MOUTH EVERY 12  HOURS FOR 2 DAYS
     Route: 048
  25. TRESIBA [Concomitant]
     Active Substance: INSULIN DEGLUDEC
     Dosage: INJECT 10 UNITS UNDER THE SKIN 3 (THREE) TIMES A DAY WITH MEALS. IF BS IS 11 OR HIGHER
     Route: 065
  26. ATACAND [Concomitant]
     Active Substance: CANDESARTAN CILEXETIL
     Dosage: TAKE 4 MG BY MOUTH DAILY. TOTAL DOSE 12 MG
     Route: 048
  27. ATACAND [Concomitant]
     Active Substance: CANDESARTAN CILEXETIL
     Dosage: TAKE 8 MG BY MOUTH DAILY. TOTAL DOSE 12 MG
     Route: 048

REACTIONS (3)
  - Bacteraemia [Not Recovered/Not Resolved]
  - Pneumonia klebsiella [Unknown]
  - Acute kidney injury [Recovered/Resolved]
